FAERS Safety Report 10547260 (Version 3)
Quarter: 2014Q4

REPORT INFORMATION
  Report Type: Spontaneous
  Country: IT (occurrence: IT)
  Receive Date: 20141028
  Receipt Date: 20141204
  Transmission Date: 20150529
  Serious: Yes (Hospitalization)
  Sender: FDA-Public Use
  Company Number: IT-AUROBINDO-AUR-APL-2014-11077

PATIENT
  Age: 84 Year
  Sex: Female

DRUGS (9)
  1. CLODRONATE DISODIUM W/LIDOCAINE HYDROCHLORIDE [Concomitant]
     Indication: OSTEOARTHRITIS
     Dosage: 1 DF, UNK
     Route: 030
     Dates: start: 20130520, end: 20140520
  2. NATECAL D3 [Concomitant]
     Active Substance: CALCIUM CARBONATE\CHOLECALCIFEROL
     Indication: OSTEOARTHRITIS
     Dosage: 1 DF, UNK
     Route: 048
     Dates: start: 20130520, end: 20140520
  3. TRITTICO [Concomitant]
     Active Substance: TRAZODONE HYDROCHLORIDE
     Indication: DEPRESSION
     Dosage: 10 GTT DROP, UNK
     Route: 048
     Dates: start: 20130520, end: 20140520
  4. SEROQUEL [Concomitant]
     Active Substance: QUETIAPINE FUMARATE
     Indication: DEPRESSION
     Dosage: 25 MG, UNK
     Route: 048
     Dates: start: 20130520, end: 20140520
  5. ENTACT [Concomitant]
     Active Substance: ESCITALOPRAM OXALATE
     Indication: DEPRESSION
     Dosage: 10 MG, UNK
     Route: 048
     Dates: start: 20130520, end: 20140520
  6. GABAPENTIN. [Concomitant]
     Active Substance: GABAPENTIN
     Indication: PRODUCT USED FOR UNKNOWN INDICATION
     Dosage: UNK
     Route: 065
     Dates: start: 20130520, end: 20140520
  7. PARACETAMOL [Concomitant]
     Active Substance: ACETAMINOPHEN
     Indication: PRODUCT USED FOR UNKNOWN INDICATION
     Dosage: 1000 MG, UNK
     Route: 048
  8. MIRTAZAPINE. [Suspect]
     Active Substance: MIRTAZAPINE
     Indication: DEPRESSION
     Dosage: UNK
     Route: 065
     Dates: start: 20140518, end: 20140520
  9. DOBETIN                            /00056201/ [Concomitant]
     Active Substance: CYANOCOBALAMIN
     Indication: ANAEMIA
     Dosage: 1 DF, UNK
     Route: 030
     Dates: start: 20130520, end: 20140520

REACTIONS (3)
  - Asthenia [Not Recovered/Not Resolved]
  - Insomnia [Not Recovered/Not Resolved]
  - Anxiety [Not Recovered/Not Resolved]

NARRATIVE: CASE EVENT DATE: 20140520
